FAERS Safety Report 5889205-0 (Version None)
Quarter: 2008Q3

REPORT INFORMATION
  Report Type: 
  Country: None (occurrence: None)
  Receive Date: 20080919
  Receipt Date: 20080912
  Transmission Date: 20090109
  Serious: Yes (Hospitalization, Other)
  Sender: FDA-Public Use
  Company Number: PHHO2008KR05437

PATIENT
  Sex: Male
  Weight: 60 kg

DRUGS (7)
  1. CERTICAN [Interacting]
     Indication: RENAL TRANSPLANT
     Dosage: 1.5 MG, BID
     Route: 048
     Dates: start: 20080216
  2. NEORAL [Suspect]
     Indication: RENAL TRANSPLANT
  3. ETHAMBUTOL HCL [Interacting]
  4. RIFAMPIN [Interacting]
  5. ISONIAZID [Interacting]
  6. PYRAZINAMIDE [Interacting]
  7. PANTOPRAZOLE SODIUM [Concomitant]

REACTIONS (11)
  - ABDOMINAL PAIN UPPER [None]
  - ACID FAST BACILLI INFECTION [None]
  - COUGH [None]
  - DRUG INTERACTION [None]
  - DRUG LEVEL DECREASED [None]
  - GASTRITIS ATROPHIC [None]
  - OROPHARYNGEAL PAIN [None]
  - PYREXIA [None]
  - RHINORRHOEA [None]
  - TUBERCULOSIS [None]
  - WEIGHT DECREASED [None]
